FAERS Safety Report 11787468 (Version 1)
Quarter: 2015Q4

REPORT INFORMATION
  Report Type: Other
  Country: US (occurrence: US)
  Receive Date: 20151130
  Receipt Date: 20151130
  Transmission Date: 20160305
  Serious: Yes (Death, Hospitalization)
  Sender: FDA-Public Use
  Company Number: US-LEHIGH_VALLEY-USA-POI0580201500073

PATIENT
  Age: 18 Year
  Sex: Male

DRUGS (5)
  1. OXYCODONE HCL CAPSULES [Suspect]
     Active Substance: OXYCODONE HYDROCHLORIDE
     Indication: PAIN
     Dates: end: 2014
  2. METHADONE [Suspect]
     Active Substance: METHADONE HYDROCHLORIDE
     Indication: PAIN
     Dates: end: 2014
  3. DRONABINOL. [Suspect]
     Active Substance: DRONABINOL
     Indication: PAIN
     Dates: end: 2014
  4. GABAPENTIN. [Suspect]
     Active Substance: GABAPENTIN
     Indication: PAIN
     Dates: end: 2014
  5. ANTIBIOTICS [Concomitant]
     Active Substance: UNSPECIFIED INGREDIENT
     Dates: end: 2014

REACTIONS (3)
  - Cardio-respiratory arrest [Fatal]
  - Intentional product misuse [Fatal]
  - Pneumoconiosis [Fatal]

NARRATIVE: CASE EVENT DATE: 2014
